FAERS Safety Report 24748717 (Version 1)
Quarter: 2024Q4

REPORT INFORMATION
  Report Type: Spontaneous
  Country: US (occurrence: US)
  Receive Date: 20241218
  Receipt Date: 20241218
  Transmission Date: 20250115
  Serious: Yes (Death)
  Sender: LEXICON PHARMACEUTICALS
  Company Number: US-LEX-000606

PATIENT
  Age: 91 Year
  Sex: Male

DRUGS (1)
  1. INPEFA [Suspect]
     Active Substance: SOTAGLIFLOZIN
     Indication: Cardiac failure
     Route: 048
     Dates: start: 20241001, end: 20241206

REACTIONS (1)
  - Death [Fatal]

NARRATIVE: CASE EVENT DATE: 20241212
